FAERS Safety Report 5926664-9 (Version None)
Quarter: 2008Q4

REPORT INFORMATION
  Report Type: 
  Country: None (occurrence: None)
  Receive Date: 20081022
  Receipt Date: 20081014
  Transmission Date: 20090506
  Serious: Yes (Hospitalization)
  Sender: FDA-Public Use
  Company Number: FR-ROCHE-591514

PATIENT
  Age: 51 Year
  Sex: Male

DRUGS (7)
  1. NAPROSYN [Suspect]
     Indication: ANKYLOSING SPONDYLITIS
     Route: 048
     Dates: end: 20080715
  2. RIFINAH [Suspect]
     Indication: TUBERCULIN TEST POSITIVE
     Route: 048
     Dates: start: 20080613
  3. IMODIUM [Suspect]
     Indication: DIARRHOEA
     Route: 065
     Dates: end: 20080715
  4. CRESTOR [Suspect]
     Indication: DRUG USE FOR UNKNOWN INDICATION
     Route: 048
  5. NEXIUM [Suspect]
     Indication: DRUG USE FOR UNKNOWN INDICATION
     Route: 048
  6. ACETAMINOPHEN [Suspect]
     Indication: PAIN
     Route: 048
  7. TRAMADOL HCL [Concomitant]

REACTIONS (2)
  - ARTHRITIS [None]
  - LEUKOCYTOCLASTIC VASCULITIS [None]
